FAERS Safety Report 16659995 (Version 5)
Quarter: 2019Q4

REPORT INFORMATION
  Report Type: Report from Study
  Country: IE (occurrence: IE)
  Receive Date: 20190802
  Receipt Date: 20191220
  Transmission Date: 20200122
  Serious: Yes (Other)
  Sender: FDA-Public Use
  Company Number: PHHY2019IE176755

PATIENT
  Age: 56 Year
  Sex: Male

DRUGS (2)
  1. SANDOSTATIN LAR DEPOT [Suspect]
     Active Substance: OCTREOTIDE ACETATE
     Indication: NEUROENDOCRINE TUMOUR
     Dosage: 30 MG, UNK
     Route: 030
     Dates: start: 20170921
  2. SANDOSTATIN LAR DEPOT [Suspect]
     Active Substance: OCTREOTIDE ACETATE
     Dosage: 30 MG, UNK
     Route: 030

REACTIONS (6)
  - Nausea [Not Recovered/Not Resolved]
  - Abdominal discomfort [Not Recovered/Not Resolved]
  - Fatigue [Recovered/Resolved]
  - Diarrhoea [Not Recovered/Not Resolved]
  - Malaise [Recovered/Resolved]
  - Vomiting [Not Recovered/Not Resolved]

NARRATIVE: CASE EVENT DATE: 20191014
